FAERS Safety Report 23683650 (Version 8)
Quarter: 2025Q3

REPORT INFORMATION
  Report Type: Spontaneous
  Country: US (occurrence: US)
  Receive Date: 20240328
  Receipt Date: 20250729
  Transmission Date: 20251020
  Serious: Yes (Other)
  Sender: SANOFI AVENTIS
  Company Number: US-SA-2024SA064195

PATIENT
  Age: 40 Year
  Sex: Female

DRUGS (6)
  1. DUPIXENT [Suspect]
     Active Substance: DUPILUMAB
     Indication: Asthma
     Dates: start: 202307, end: 202307
  2. DUPIXENT [Suspect]
     Active Substance: DUPILUMAB
     Dosage: 300 MG, QOW
     Dates: start: 2023
  3. DUPIXENT [Suspect]
     Active Substance: DUPILUMAB
     Route: 058
     Dates: start: 20230803, end: 20230803
  4. DUPIXENT [Suspect]
     Active Substance: DUPILUMAB
     Dosage: 300 MG, QOW
     Route: 058
     Dates: start: 20230817
  5. DUPIXENT [Suspect]
     Active Substance: DUPILUMAB
     Dosage: 300 MG, Q3W
     Route: 058
  6. ALBUTEROL [Concomitant]
     Active Substance: ALBUTEROL

REACTIONS (20)
  - Pneumonia [Unknown]
  - Productive cough [Recovering/Resolving]
  - Hot flush [Recovering/Resolving]
  - Dyspnoea [Not Recovered/Not Resolved]
  - Pyrexia [Recovering/Resolving]
  - Influenza [Unknown]
  - Bronchitis [Unknown]
  - Urinary incontinence [Unknown]
  - Sleep disorder due to a general medical condition [Recovering/Resolving]
  - Anxiety [Unknown]
  - Throat irritation [Recovered/Resolved]
  - Throat tightness [Unknown]
  - Illness [Unknown]
  - Back pain [Recovering/Resolving]
  - Arthralgia [Recovering/Resolving]
  - Asthma [Not Recovered/Not Resolved]
  - Cough [Recovered/Resolved]
  - Surgery [Unknown]
  - Intercepted product storage error [Unknown]
  - Off label use [Unknown]

NARRATIVE: CASE EVENT DATE: 20240430
